FAERS Safety Report 4646583-8 (Version None)
Quarter: 2005Q2

REPORT INFORMATION
  Report Type: 
  Country: None (occurrence: None)
  Receive Date: 20050426
  Receipt Date: 20050411
  Transmission Date: 20051028
  Serious: Yes (Life-Threatening, Hospitalization)
  Sender: FDA-Public Use
  Company Number: 004197

PATIENT
  Age: 46 Year
  Sex: Female
  Weight: 90.7 kg

DRUGS (1)
  1. CLARAVIS [Suspect]
     Indication: ACNE
     Dosage: 1.00 CAPS, QD, ORAL
     Route: 048
     Dates: start: 20040301, end: 20040715

REACTIONS (2)
  - COMA [None]
  - SUICIDE ATTEMPT [None]
